FAERS Safety Report 7216876-9 (Version None)
Quarter: 2010Q4

REPORT INFORMATION
  Report Type: 
  Country: None (occurrence: None)
  Receive Date: 20101229
  Receipt Date: 20101221
  Transmission Date: 20110411
  Serious: Yes (Life-Threatening)
  Sender: FDA-Public Use
  Company Number: 2010SP057835

PATIENT
  Age: 68 Year
  Sex: Female

DRUGS (16)
  1. REFLEX (MIRTAZAPINE /01293201/) [Suspect]
     Indication: DEPRESSION
     Dosage: 15 MG;QD;PO 30 MG;QD;PO
     Route: 048
     Dates: start: 20100614, end: 20101003
  2. REFLEX (MIRTAZAPINE /01293201/) [Suspect]
     Indication: DEPRESSION
     Dosage: 15 MG;QD;PO 30 MG;QD;PO
     Route: 048
     Dates: start: 20101004, end: 20101014
  3. ETIZOLAM (ETIZOLAM) [Suspect]
     Indication: DEPRESSION
     Dosage: 1.5 MG;QD;PO
     Route: 048
  4. ZOLPIDEM TARTRATE [Suspect]
     Indication: DEPRESSION
     Dosage: 5 MG;QD;PO
     Route: 048
  5. LORAZEPAM [Suspect]
     Indication: ANXIETY
     Dosage: 0.5 MG;QD;PO
     Route: 048
  6. LORAZEPAM [Suspect]
     Indication: DEPRESSION
     Dosage: 0.5 MG;QD;PO
     Route: 048
  7. DIAZEPAM [Suspect]
     Indication: DEPRESSION
     Dosage: 4 MG;QD;PO
     Route: 048
     Dates: end: 20100614
  8. DIOVAN [Suspect]
     Indication: HYPERTENSION
     Dosage: 40 MG;QD;PO
     Route: 048
     Dates: end: 20101015
  9. CLARITHROMYCIN [Concomitant]
  10. MEQUITAZINE [Concomitant]
  11. POVIDONE IODINE [Concomitant]
  12. SULPIRIDE [Concomitant]
  13. OCTOTIAMINE [Concomitant]
  14. QUETIAPINE FUMARATE [Concomitant]
  15. CARBOCISTEINE [Concomitant]
  16. DOGMATYL [Concomitant]

REACTIONS (19)
  - ALANINE AMINOTRANSFERASE INCREASED [None]
  - ASPARTATE AMINOTRANSFERASE INCREASED [None]
  - BLOOD CHOLESTEROL INCREASED [None]
  - BLOOD TRIGLYCERIDES INCREASED [None]
  - CONSTIPATION [None]
  - DECREASED APPETITE [None]
  - DEPRESSION [None]
  - DRUG INEFFECTIVE [None]
  - DRUG INTERACTION [None]
  - DYSPNOEA [None]
  - DYSURIA [None]
  - HEADACHE [None]
  - INSOMNIA [None]
  - IRRITABILITY [None]
  - PHARYNGITIS [None]
  - SEDATION [None]
  - SUICIDAL BEHAVIOUR [None]
  - SUICIDAL IDEATION [None]
  - WEIGHT DECREASED [None]
